FAERS Safety Report 5110767-5 (Version None)
Quarter: 2006Q3

REPORT INFORMATION
  Report Type: 
  Country: None (occurrence: None)
  Receive Date: 20060919
  Receipt Date: 20060906
  Transmission Date: 20061208
  Serious: Yes (Disabling)
  Sender: FDA-Public Use
  Company Number: HQWYE082729AUG06

PATIENT
  Age: 24 Year
  Sex: Female

DRUGS (3)
  1. EFFEXOR XR [Suspect]
     Indication: DEPRESSION
     Dosage: SEE IMAGE
     Dates: start: 20060424, end: 20060801
  2. EFFEXOR XR [Suspect]
     Indication: DEPRESSION
     Dosage: SEE IMAGE
     Dates: start: 20060801, end: 20060801
  3. EFFEXOR XR [Suspect]
     Indication: DEPRESSION
     Dosage: SEE IMAGE
     Dates: start: 20060801, end: 20060824

REACTIONS (15)
  - CONFUSIONAL STATE [None]
  - DIARRHOEA [None]
  - DIZZINESS [None]
  - DRUG EXPOSURE DURING PREGNANCY [None]
  - DRUG WITHDRAWAL SYNDROME [None]
  - FEELING HOT AND COLD [None]
  - HEADACHE [None]
  - HUNGER [None]
  - HYPERHIDROSIS [None]
  - INSOMNIA [None]
  - MOOD ALTERED [None]
  - NAUSEA [None]
  - PARAESTHESIA [None]
  - TREMOR [None]
  - VOMITING [None]
